FAERS Safety Report 4733272-4 (Version None)
Quarter: 2005Q3

REPORT INFORMATION
  Report Type: 
  Country: None (occurrence: None)
  Receive Date: 20050803
  Receipt Date: 20050726
  Transmission Date: 20060218
  Serious: Yes (Life-Threatening)
  Sender: FDA-Public Use
  Company Number: ES-BRISTOL-MYERS SQUIBB COMPANY-13051842

PATIENT
  Age: 31 Year
  Sex: Female
  Weight: 41 kg

DRUGS (1)
  1. ABILIFY [Suspect]
     Route: 048
     Dates: start: 20050505, end: 20050516

REACTIONS (7)
  - AGITATION [None]
  - CONVULSION [None]
  - HYPERTENSION [None]
  - INSOMNIA [None]
  - NAUSEA [None]
  - VOMITING [None]
  - WEIGHT DECREASED [None]
